FAERS Safety Report 8144891 (Version 12)
Quarter: 2014Q3

REPORT INFORMATION
  Report Type: Spontaneous
  Country: GB (occurrence: GB)
  Receive Date: 20110920
  Receipt Date: 20140808
  Transmission Date: 20150326
  Serious: Yes (Hospitalization, Other)
  Sender: FDA-Public Use
  Company Number: PHFR2011GB05244

PATIENT
  Age: 44 Year
  Sex: Male

DRUGS (4)
  1. CLOZARIL [Suspect]
     Active Substance: CLOZAPINE
     Indication: SCHIZOPHRENIA
     Dosage: UNK UKN, UNK
     Route: 048
     Dates: start: 20010319, end: 20110913
  2. HALOPERIDOL. [Suspect]
     Active Substance: HALOPERIDOL
     Dosage: 6 MG, UNK
     Dates: start: 20110916, end: 20110923
  3. ZUCLOPENTHIXOL DECANOATE [Concomitant]
     Active Substance: ZUCLOPENTHIXOL DECANOATE
  4. BENDROFLUMETHIAZIDE [Concomitant]
     Active Substance: BENDROFLUMETHIAZIDE

REACTIONS (12)
  - Psychotic disorder [Not Recovered/Not Resolved]
  - Infection [Unknown]
  - Neuroleptic malignant syndrome [Recovering/Resolving]
  - Skin ulcer [Unknown]
  - Neutropenia [Recovering/Resolving]
  - White blood cell count decreased [Unknown]
  - Convulsion [Unknown]
  - Suicidal ideation [Unknown]
  - Platelet count decreased [Unknown]
  - Thrombocytopenia [Unknown]
  - Extrapyramidal disorder [Unknown]
  - Dystonia [Unknown]

NARRATIVE: CASE EVENT DATE: 201109
